FAERS Safety Report 7001502-4 (Version None)
Quarter: 2010Q3

REPORT INFORMATION
  Report Type: 
  Country: None (occurrence: None)
  Receive Date: 20100920
  Receipt Date: 20100913
  Transmission Date: 20110219
  Serious: Yes (Life-Threatening, Hospitalization)
  Sender: FDA-Public Use
  Company Number: NL-ROCHE-726986

PATIENT
  Weight: 76 kg

DRUGS (7)
  1. CAPECITABINE [Suspect]
     Indication: GASTRIC CANCER
     Dosage: IN DIVIDED DOSES, FROM DAY 1-14 EVERY 3 WEEKS, STRENGTH 500 MG  OR 150 MG TABLET AS PER PROTOCOL
     Route: 048
     Dates: start: 20100826
  2. EPIRUBICIN [Suspect]
     Indication: GASTRIC CANCER
     Dosage: DAY 1, DOSAGE AS PER PROTOCOL
     Route: 042
     Dates: start: 20100826
  3. CISPLATIN [Suspect]
     Indication: GASTRIC CANCER
     Dosage: DAY 1, DOSAGE AS PER PROTOCOL
     Route: 042
     Dates: start: 20100826
  4. OMEPRAZOLE [Concomitant]
  5. COAPROVEL [Concomitant]
  6. PRIMPERAN TAB [Concomitant]
  7. SIMVASTATIN [Concomitant]

REACTIONS (5)
  - APHASIA [None]
  - ASTHENIA [None]
  - CONVULSION [None]
  - NEUTROPENIA [None]
  - PYREXIA [None]
